FAERS Safety Report 14381700 (Version 1)
Quarter: 2018Q1

REPORT INFORMATION
  Report Type: Spontaneous
  Country: US (occurrence: US)
  Receive Date: 20180111
  Receipt Date: 20180111
  Transmission Date: 20180509
  Serious: Yes (Disabling)
  Sender: FDA-Public Use
  Company Number: None

PATIENT
  Age: 59 Year
  Sex: Female
  Weight: 49.5 kg

DRUGS (5)
  1. MULTIVITAMINS [Concomitant]
     Active Substance: VITAMINS
  2. FISH OIL [Concomitant]
     Active Substance: FISH OIL
  3. EVENING PRIMROSE OIL [Concomitant]
     Active Substance: EVENING PRIMROSE OIL\HERBALS
  4. COLLAGEN FOR SKIN AND HAIR [Concomitant]
  5. WELLBUTRIN XL [Suspect]
     Active Substance: BUPROPION HYDROCHLORIDE
     Indication: DEPRESSION
     Dosage: ?          QUANTITY:1 TABLET(S);?
     Route: 048

REACTIONS (7)
  - Vertigo [None]
  - Disturbance in attention [None]
  - Abdominal pain upper [None]
  - Drug ineffective [None]
  - Impaired work ability [None]
  - Amnesia [None]
  - Pain [None]

NARRATIVE: CASE EVENT DATE: 20170501
